FAERS Safety Report 5660859-7 (Version None)
Quarter: 2008Q1

REPORT INFORMATION
  Report Type: 
  Country: None (occurrence: None)
  Receive Date: 20080311
  Receipt Date: 20080306
  Transmission Date: 20080703
  Serious: Yes (Hospitalization)
  Sender: FDA-Public Use
  Company Number: JP-ALLERGAN-0712923US

PATIENT
  Sex: Male

DRUGS (2)
  1. BLINDED BOTOX PLACEBO [Suspect]
     Indication: DRUG USE FOR UNKNOWN INDICATION
     Dosage: 300 UNITS, SINGLE
     Dates: start: 20070913, end: 20070913
  2. BLINDED BOTULINUM TOXIN TYPE A - GENERAL [Suspect]
     Indication: DRUG USE FOR UNKNOWN INDICATION
     Dosage: 300 UNITS, SINGLE
     Dates: start: 20070913, end: 20070913

REACTIONS (1)
  - FIBULA FRACTURE [None]
